FAERS Safety Report 9844309 (Version 2)
Quarter: 2014Q1

REPORT INFORMATION
  Report Type: Spontaneous
  Country: JP (occurrence: None)
  Receive Date: 20140123
  Receipt Date: 20140227
  Transmission Date: 20141002
  Serious: Yes (Life-Threatening)
  Sender: FDA-Public Use
  Company Number: B0962084A

PATIENT
  Age: 69 Year
  Sex: Male

DRUGS (4)
  1. PAROXETINE HYDROCHLORIDE [Suspect]
     Indication: DEPRESSION
     Route: 048
     Dates: start: 20131118, end: 20131208
  2. PAROXETINE HYDROCHLORIDE [Suspect]
     Indication: DEPRESSION
     Route: 048
     Dates: start: 20131209, end: 20131215
  3. DULOXETINE [Concomitant]
  4. HALOPERIODOL [Concomitant]

REACTIONS (2)
  - Inappropriate antidiuretic hormone secretion [None]
  - Constipation [None]
